FAERS Safety Report 12954462 (Version 1)
Quarter: 2016Q4

REPORT INFORMATION
  Report Type: Report from Study
  Country: US (occurrence: US)
  Receive Date: 20161118
  Receipt Date: 20161118
  Transmission Date: 20170207
  Serious: No
  Sender: FDA-Public Use
  Company Number: US-AMGEN-USASL2016160440

PATIENT
  Age: 54 Year
  Sex: Female

DRUGS (1)
  1. ENBREL [Suspect]
     Active Substance: ETANERCEPT
     Indication: PSORIATIC ARTHROPATHY
     Dosage: UNK
     Route: 065

REACTIONS (12)
  - Asthenia [Unknown]
  - Rash generalised [Unknown]
  - Weight decreased [Unknown]
  - Tooth loss [Unknown]
  - Lethargy [Unknown]
  - Pain [Unknown]
  - Skin burning sensation [Unknown]
  - Diarrhoea [Unknown]
  - Fatigue [Unknown]
  - Drug ineffective [Unknown]
  - Alopecia [Unknown]
  - Bone pain [Unknown]
